FAERS Safety Report 12918203 (Version 1)
Quarter: 2016Q4

REPORT INFORMATION
  Report Type: Spontaneous
  Country: CL (occurrence: CL)
  Receive Date: 20161107
  Receipt Date: 20161107
  Transmission Date: 20170207
  Serious: Yes (Death, Hospitalization)
  Sender: FDA-Public Use
  Company Number: CL-BAXTER-2016BAX055986

PATIENT
  Age: 19 Year
  Sex: Female

DRUGS (1)
  1. DIANEAL WITH DEXTROSE [Suspect]
     Active Substance: CALCIUM CHLORIDE\DEXTROSE\MAGNESIUM CHLORIDE\SODIUM CHLORIDE\SODIUM LACTATE
     Indication: PERITONEAL DIALYSIS
     Route: 033

REACTIONS (6)
  - Peritonitis bacterial [Unknown]
  - Decreased immune responsiveness [Unknown]
  - Blood urea increased [Unknown]
  - Fluid overload [Unknown]
  - Multiple organ dysfunction syndrome [Fatal]
  - Ultrafiltration failure [Unknown]

NARRATIVE: CASE EVENT DATE: 201610
